FAERS Safety Report 5440814-2 (Version None)
Quarter: 2007Q3

REPORT INFORMATION
  Report Type: 
  Country: None (occurrence: None)
  Receive Date: 20070831
  Receipt Date: 20070823
  Transmission Date: 20080115
  Serious: Yes (Life-Threatening, Hospitalization)
  Sender: FDA-Public Use
  Company Number: JP-MERCK-0708USA01626

PATIENT
  Age: 87 Year
  Sex: Male

DRUGS (3)
  1. PRIMAXIN [Suspect]
     Indication: PNEUMONIA
     Route: 041
     Dates: start: 20070801, end: 20070807
  2. MEROPENEM [Concomitant]
     Route: 042
     Dates: end: 20070801
  3. BIAPENEM [Concomitant]
     Indication: PNEUMONIA
     Route: 041
     Dates: start: 20070725, end: 20070731

REACTIONS (1)
  - IDIOPATHIC THROMBOCYTOPENIC PURPURA [None]
